FAERS Safety Report 7998198-1 (Version None)
Quarter: 2011Q4

REPORT INFORMATION
  Report Type: 
  Country: None (occurrence: None)
  Receive Date: 20111221
  Receipt Date: 20110406
  Transmission Date: 20120403
  Serious: No
  Sender: FDA-Public Use
  Company Number: US-GLAXOSMITHKLINE-A0921644A

PATIENT
  Age: 44 Year
  Sex: Female

DRUGS (6)
  1. VITAMIN C [Concomitant]
  2. MULTI-VITAMIN [Concomitant]
  3. LOVAZA [Suspect]
     Indication: BLOOD TRIGLYCERIDES INCREASED
     Dosage: 1CAP TWICE PER DAY
     Route: 048
     Dates: start: 20110115
  4. CALCIUM [Concomitant]
  5. VITAMIN D [Concomitant]
  6. ZYRTEC [Concomitant]

REACTIONS (3)
  - NAIL RIDGING [None]
  - DYSGEUSIA [None]
  - LOW DENSITY LIPOPROTEIN INCREASED [None]
